FAERS Safety Report 25872990 (Version 1)
Quarter: 2025Q4

REPORT INFORMATION
  Report Type: Spontaneous
  Country: US (occurrence: None)
  Receive Date: 20251001
  Receipt Date: 20251001
  Transmission Date: 20260118
  Serious: Yes (Other)
  Sender: FDA-CTU
  Company Number: None

PATIENT
  Age: 62 Year
  Sex: Male

DRUGS (2)
  1. EVEROLIMUS [Suspect]
     Active Substance: EVEROLIMUS
     Indication: Heart transplant
     Dosage: 0.5 MG BID ORAL ?
     Route: 048
     Dates: start: 20250404
  2. EVEROLIMUS [Suspect]
     Active Substance: EVEROLIMUS
     Indication: Heart transplant
     Dosage: 1 MG DAILY ORAL
     Route: 048

REACTIONS (2)
  - Rash [None]
  - Furuncle [None]

NARRATIVE: CASE EVENT DATE: 20250409
